FAERS Safety Report 12531016 (Version 1)
Quarter: 2016Q3

REPORT INFORMATION
  Report Type: Spontaneous
  Country: US (occurrence: None)
  Receive Date: 20160705
  Receipt Date: 20160705
  Transmission Date: 20161109
  Serious: No
  Sender: FDA-Public Use
  Company Number: None

PATIENT
  Age: 31 Year
  Sex: Female
  Weight: 79.38 kg

DRUGS (2)
  1. WAL-DRYL ALLERGY [Suspect]
     Active Substance: DIPHENHYDRAMINE HYDROCHLORIDE
     Indication: SWELLING
     Route: 048
  2. PENICILLIN [Concomitant]
     Active Substance: PENICILLIN

REACTIONS (5)
  - Irritability [None]
  - Pruritus [None]
  - Peripheral swelling [None]
  - Dysgeusia [None]
  - Dry skin [None]

NARRATIVE: CASE EVENT DATE: 20160622
